FAERS Safety Report 13830247 (Version 1)
Quarter: 2017Q3

REPORT INFORMATION
  Report Type: Spontaneous
  Country: US (occurrence: US)
  Receive Date: 20170803
  Receipt Date: 20170803
  Transmission Date: 20171127
  Serious: No
  Sender: FDA-Public Use
  Company Number: US-SA-2017SA118233

PATIENT
  Age: 71 Year
  Sex: Male
  Weight: 85.7 kg

DRUGS (2)
  1. PRALUENT [Suspect]
     Active Substance: ALIROCUMAB
     Indication: PERIPHERAL ARTERIAL OCCLUSIVE DISEASE
     Route: 058
     Dates: start: 20160901, end: 20170401
  2. ALIROCUMAB PREFILLED PEN [Concomitant]
     Active Substance: ALIROCUMAB
     Dates: start: 20160901, end: 20170401

REACTIONS (1)
  - Drug ineffective [Unknown]
